FAERS Safety Report 5518193-1 (Version None)
Quarter: 2007Q4

REPORT INFORMATION
  Report Type: 
  Country: None (occurrence: None)
  Receive Date: 20071113
  Receipt Date: 20071113
  Transmission Date: 20080405
  Serious: Yes (Life-Threatening, Hospitalization, Disabling, Other)
  Sender: FDA-Public Use
  Company Number: None

PATIENT
  Age: 66 Year
  Sex: Male
  Weight: 107 kg

DRUGS (7)
  1. BYETTA [Suspect]
     Indication: TYPE 2 DIABETES MELLITUS
     Dosage: 10MCG BID SQ
     Route: 058
     Dates: start: 20070715, end: 20071027
  2. AVANDIA [Concomitant]
  3. CRESTOR [Concomitant]
  4. COREG CR [Concomitant]
  5. ALTACE [Concomitant]
  6. AMARYL [Concomitant]
  7. ASPIRIN [Concomitant]

REACTIONS (1)
  - PANCREATITIS [None]
